FAERS Safety Report 5631789-1 (Version None)
Quarter: 2008Q1

REPORT INFORMATION
  Report Type: 
  Country: None (occurrence: None)
  Receive Date: 20080220
  Receipt Date: 20080211
  Transmission Date: 20080703
  Serious: Yes (Hospitalization)
  Sender: FDA-Public Use
  Company Number: PHHO2008AU01235

PATIENT
  Age: 62 Year
  Sex: Male

DRUGS (10)
  1. IMATINIB MESYLATE [Suspect]
     Indication: GASTROINTESTINAL STROMAL TUMOUR
     Dosage: 800MG
     Route: 048
     Dates: start: 20070329, end: 20071220
  2. OXYCONTIN [Concomitant]
  3. MAXOLON [Concomitant]
  4. COLOXYL WITH SENNA [Concomitant]
  5. SUNITINIB MALATE [Concomitant]
  6. PERINDOPRIL [Concomitant]
  7. MOVICOL [Concomitant]
  8. HALOPERIDOL [Concomitant]
  9. OXYCODONE HCL [Concomitant]
  10. PANTOPRAZOLE SODIUM [Concomitant]

REACTIONS (8)
  - ASCITES [None]
  - ATELECTASIS [None]
  - INCISIONAL DRAINAGE [None]
  - LUNG CONSOLIDATION [None]
  - NAUSEA [None]
  - PERITONITIS [None]
  - PLEURAL EFFUSION [None]
  - VOMITING [None]
